FAERS Safety Report 8896414 (Version 1)
Quarter: 2012Q4

REPORT INFORMATION
  Report Type: Spontaneous
  Country: US (occurrence: None)
  Receive Date: 20121107
  Receipt Date: 20121107
  Transmission Date: 20130627
  Serious: No
  Sender: FDA-Public Use
  Company Number: None

PATIENT
  Age: 53 Year
  Sex: Female
  Weight: 71.22 kg

DRUGS (1)
  1. MONTELUKAST [Suspect]
     Indication: ASTHMA
     Dosage: 10 mg daily oral
     Route: 048
     Dates: start: 20121009

REACTIONS (4)
  - Chest discomfort [None]
  - Tinnitus [None]
  - Pruritus [None]
  - Pruritus [None]
